FAERS Safety Report 6930322-1 (Version None)
Quarter: 2010Q3

REPORT INFORMATION
  Report Type: 
  Country: None (occurrence: None)
  Receive Date: 20100818
  Receipt Date: 20100809
  Transmission Date: 20110219
  Serious: Yes (Other)
  Sender: FDA-Public Use
  Company Number: JP-ROCHE-717171

PATIENT
  Sex: Male
  Weight: 54.6 kg

DRUGS (12)
  1. TOCILIZUMAB [Suspect]
     Indication: CASTLEMAN'S DISEASE
     Route: 041
     Dates: start: 20100520, end: 20100701
  2. TOCILIZUMAB [Suspect]
     Route: 041
     Dates: start: 20100715
  3. PREDONINE [Suspect]
     Indication: CASTLEMAN'S DISEASE
     Route: 048
     Dates: start: 20100216, end: 20100228
  4. PREDONINE [Suspect]
     Route: 048
     Dates: start: 20100301, end: 20100311
  5. PREDONINE [Suspect]
     Route: 048
     Dates: start: 20100312, end: 20100328
  6. PREDONINE [Suspect]
     Route: 048
     Dates: start: 20100329, end: 20100408
  7. PREDONINE [Suspect]
     Route: 048
     Dates: start: 20100409, end: 20100412
  8. PREDONINE [Suspect]
     Route: 048
     Dates: start: 20100413, end: 20100415
  9. PREDONINE [Suspect]
     Route: 048
     Dates: start: 20100416, end: 20100419
  10. PREDONINE [Suspect]
     Dosage: EVERY OTHER DAY 20 MG AND 10 MG
     Route: 048
     Dates: start: 20100430, end: 20100527
  11. PREDONINE [Suspect]
     Dosage: EVERY OTHER DAY 15 MG AND 5 MG
     Route: 048
     Dates: start: 20100528, end: 20100603
  12. PREDONINE [Suspect]
     Route: 048
     Dates: start: 20100604

REACTIONS (1)
  - LYMPHOPENIA [None]
